FAERS Safety Report 23993617 (Version 1)
Quarter: 2024Q2

REPORT INFORMATION
  Report Type: Spontaneous
  Country: JP (occurrence: JP)
  Receive Date: 20240620
  Receipt Date: 20240620
  Transmission Date: 20240716
  Serious: Yes (Hospitalization)
  Sender: FDA-Public Use
  Company Number: JP-STRIDES ARCOLAB LIMITED-2024SP007021

PATIENT
  Age: 67 Year
  Sex: Female

DRUGS (3)
  1. PREDNISOLONE [Suspect]
     Active Substance: PREDNISOLONE
     Indication: Lupus cystitis
     Dosage: 5 MILLIGRAM, QD
     Route: 065
  2. PREDNISOLONE [Suspect]
     Active Substance: PREDNISOLONE
     Dosage: UNK (DOSE REDUCED)
     Route: 065
  3. MYCOPHENOLATE MOFETIL [Suspect]
     Active Substance: MYCOPHENOLATE MOFETIL
     Indication: Lupus cystitis
     Dosage: 500 MILLIGRAM, QD
     Route: 065

REACTIONS (6)
  - Urinary bladder atrophy [Unknown]
  - Bladder perforation [Unknown]
  - Bacteriuria [Unknown]
  - Escherichia infection [Unknown]
  - Pyelonephritis acute [Unknown]
  - Off label use [Unknown]
